FAERS Safety Report 8528565-9 (Version None)
Quarter: 2012Q3

REPORT INFORMATION
  Report Type: 
  Country: None (occurrence: None)
  Receive Date: 20120723
  Receipt Date: 20120718
  Transmission Date: 20120928
  Serious: Yes (Hospitalization)
  Sender: FDA-Public Use
  Company Number: US-BIOGENIDEC-2012BI025599

PATIENT
  Sex: Male

DRUGS (2)
  1. TYSABRI [Suspect]
     Indication: MULTIPLE SCLEROSIS
     Route: 042
     Dates: start: 20070717, end: 20090429
  2. TYSABRI [Suspect]
     Route: 042

REACTIONS (4)
  - MOTOR DYSFUNCTION [None]
  - ASTHENIA [None]
  - COORDINATION ABNORMAL [None]
  - HIP ARTHROPLASTY [None]
